FAERS Safety Report 12935323 (Version 1)
Quarter: 2016Q4

REPORT INFORMATION
  Report Type: Spontaneous
  Country: US (occurrence: US)
  Receive Date: 20161114
  Receipt Date: 20161114
  Transmission Date: 20170207
  Serious: No
  Sender: FDA-Public Use
  Company Number: US-JAZZ-2016-US-018708

PATIENT
  Age: 19 Year
  Sex: Female

DRUGS (8)
  1. LAMICTAL [Concomitant]
     Active Substance: LAMOTRIGINE
  2. XYREM [Suspect]
     Active Substance: SODIUM OXYBATE
     Dosage: 3.75 G, BID
     Route: 048
     Dates: start: 201303, end: 201304
  3. XYREM [Suspect]
     Active Substance: SODIUM OXYBATE
     Indication: NARCOLEPSY
     Dosage: 3 G, BID
     Route: 048
     Dates: start: 201303, end: 201303
  4. DAY TIME MULTI SYMPTOM COLD/FLU RELIEF [Concomitant]
  5. LEVOTHYROXINE. [Concomitant]
     Active Substance: LEVOTHYROXINE
  6. XYREM [Suspect]
     Active Substance: SODIUM OXYBATE
     Dosage: 4.5 G, BID
     Route: 048
     Dates: start: 201304
  7. LITHIUM CARBONATE. [Concomitant]
     Active Substance: LITHIUM CARBONATE
  8. ZOLOFT [Concomitant]
     Active Substance: SERTRALINE HYDROCHLORIDE

REACTIONS (3)
  - Nasopharyngitis [Recovering/Resolving]
  - Feeling abnormal [Unknown]
  - Somnolence [Unknown]

NARRATIVE: CASE EVENT DATE: 20160918
